FAERS Safety Report 4537224-9 (Version None)
Quarter: 2004Q4

REPORT INFORMATION
  Report Type: 
  Country: None (occurrence: None)
  Receive Date: 20041223
  Receipt Date: 20041005
  Transmission Date: 20050328
  Serious: Yes (Other)
  Sender: FDA-Public Use
  Company Number: PHEH2004US10742

PATIENT
  Age: 64 Year
  Sex: Male

DRUGS (8)
  1. CYTOXAN [Concomitant]
  2. KYTRIL [Concomitant]
  3. VICODIN [Concomitant]
  4. AMBIEN [Concomitant]
  5. HUMULIN N [Concomitant]
  6. PREDNISONE TAB [Concomitant]
  7. ALBUTEROL [Concomitant]
  8. ZOMETA [Suspect]
     Indication: MULTIPLE MYELOMA
     Dosage: 4 MG EVERY 4 WEEKS
     Dates: start: 20020408, end: 20040924

REACTIONS (4)
  - OSTEONECROSIS [None]
  - PERIODONTAL INFECTION [None]
  - TOOTH EXTRACTION [None]
  - WOUND DEBRIDEMENT [None]
